FAERS Safety Report 7496008-2 (Version None)
Quarter: 2011Q2

REPORT INFORMATION
  Report Type: 
  Country: None (occurrence: None)
  Receive Date: 20110513
  Receipt Date: 20110505
  Transmission Date: 20111010
  Serious: Yes (Other)
  Sender: FDA-Public Use
  Company Number: 1000020724

PATIENT
  Age: 32 Year
  Sex: Female

DRUGS (2)
  1. LEXAPRO [Suspect]
     Indication: DEPRESSION
     Dosage: 20 MG (20 MG, 1 IN 1 D), ORAL
     Route: 048
  2. NORCO (VICODIN) (VICODIN) [Concomitant]

REACTIONS (3)
  - SOMNOLENCE [None]
  - IMPAIRED DRIVING ABILITY [None]
  - SEDATION [None]
